FAERS Safety Report 9851734 (Version 4)
Quarter: 2015Q4

REPORT INFORMATION
  Report Type: Report from Study
  Country: BR (occurrence: BR)
  Receive Date: 20140129
  Receipt Date: 20151008
  Transmission Date: 20160305
  Serious: Yes (Hospitalization)
  Sender: FDA-Public Use
  Company Number: BR-ROCHE-1056674

PATIENT
  Age: 14 Year
  Sex: Male
  Weight: 46 kg

DRUGS (3)
  1. ACTEMRA [Suspect]
     Active Substance: TOCILIZUMAB
     Indication: RHEUMATOID ARTHRITIS
     Dosage: DATE OF LAST INFUSION: 06/JAN/2014?DATE OF LAST INFUSION: 01/JUL/2015
     Route: 042
     Dates: start: 20100501
  2. CYCLOSPORINE. [Concomitant]
     Active Substance: CYCLOSPORINE
  3. PREDNISONE. [Concomitant]
     Active Substance: PREDNISONE
     Route: 065

REACTIONS (14)
  - Infection [Recovering/Resolving]
  - Red blood cell count decreased [Recovering/Resolving]
  - Influenza [Recovered/Resolved]
  - Macule [Unknown]
  - Enteritis infectious [Unknown]
  - Dengue fever [Unknown]
  - Drug hypersensitivity [Unknown]
  - Erythema [Unknown]
  - White blood cell count decreased [Recovering/Resolving]
  - Hepatomegaly [Recovering/Resolving]
  - Splenomegaly [Recovering/Resolving]
  - Dry skin [Unknown]
  - Rheumatoid arthritis [Unknown]
  - Skin exfoliation [Unknown]

NARRATIVE: CASE EVENT DATE: 201506
